FAERS Safety Report 7420759-9 (Version None)
Quarter: 2011Q2

REPORT INFORMATION
  Report Type: 
  Country: None (occurrence: None)
  Receive Date: 20110418
  Receipt Date: 20110411
  Transmission Date: 20111010
  Serious: Yes (Other)
  Sender: FDA-Public Use
  Company Number: US-ROCHE-761383

PATIENT
  Sex: Male

DRUGS (1)
  1. ACCUTANE [Suspect]
     Indication: ACNE
     Route: 065
     Dates: start: 20020201, end: 20020401

REACTIONS (5)
  - LIP SWELLING [None]
  - CROHN'S DISEASE [None]
  - PERIRECTAL ABSCESS [None]
  - ANAL FISTULA [None]
  - INFLAMMATORY BOWEL DISEASE [None]
